FAERS Safety Report 8812189 (Version 3)
Quarter: 2014Q1

REPORT INFORMATION
  Report Type: Report from Study
  Country: US (occurrence: US)
  Receive Date: 20120927
  Receipt Date: 20140326
  Transmission Date: 20141002
  Serious: Yes (Other)
  Sender: FDA-Public Use
  Company Number: US-ELI_LILLY_AND_COMPANY-US201206004738

PATIENT
  Sex: Female

DRUGS (3)
  1. TERIPARATIDE [Suspect]
     Indication: OSTEOPOROSIS
     Dosage: 20 UG, QD
     Route: 058
     Dates: start: 20120315
  2. TERIPARATIDE [Suspect]
     Dosage: 20 UG, QD
     Route: 058
     Dates: start: 20120315
  3. TERIPARATIDE [Suspect]
     Dosage: UNK
     Route: 058
     Dates: start: 20120315

REACTIONS (7)
  - Spinal fracture [Unknown]
  - Nerve compression [Unknown]
  - Pain [Unknown]
  - Pain in extremity [Unknown]
  - Limb discomfort [Unknown]
  - Exostosis [Unknown]
  - Fall [Unknown]
